FAERS Safety Report 10884964 (Version 1)
Quarter: 2015Q1

REPORT INFORMATION
  Report Type: Spontaneous
  Country: NL (occurrence: NL)
  Receive Date: 20150304
  Receipt Date: 20150304
  Transmission Date: 20150721
  Serious: Yes (Other)
  Sender: FDA-Public Use
  Company Number: NL-TEVA-544799ISR

PATIENT
  Age: 76 Year
  Sex: Male

DRUGS (2)
  1. CLINDAMYCINE TEVA 300 MG, CAPSULES [Suspect]
     Active Substance: CLINDAMYCIN\CLINDAMYCIN PHOSPHATE
     Dosage: 1200 MILLIGRAM DAILY;
     Route: 048
     Dates: start: 20150221, end: 20150222
  2. CLINDAMYCINE TEVA 300 MG, CAPSULES [Suspect]
     Active Substance: CLINDAMYCIN\CLINDAMYCIN PHOSPHATE
     Dosage: 900 MILLIGRAM DAILY;
     Route: 048
     Dates: start: 201502, end: 201502

REACTIONS (5)
  - Back pain [Recovering/Resolving]
  - Initial insomnia [Recovered/Resolved]
  - Drug ineffective [Recovered/Resolved]
  - Muscle rupture [None]
  - Abasia [Recovered/Resolved]
